FAERS Safety Report 7985375 (Version 3)
Quarter: 2014Q2

REPORT INFORMATION
  Report Type: Spontaneous
  Country: CN (occurrence: CN)
  Receive Date: 20110610
  Receipt Date: 20140407
  Transmission Date: 20141212
  Serious: Yes (Hospitalization)
  Sender: FDA-Public Use
  Company Number: CN-JNJFOC-20110600608

PATIENT
  Age: 64 Year
  Sex: Male
  Weight: 60 kg

DRUGS (2)
  1. SPORANOX [Suspect]
     Indication: TINEA INFECTION
     Route: 048
     Dates: start: 20110530, end: 20110531
  2. SPORANOX [Suspect]
     Indication: ONYCHOMYCOSIS
     Route: 048
     Dates: start: 20110530, end: 20110531

REACTIONS (1)
  - VIIth nerve paralysis [Not Recovered/Not Resolved]
